FAERS Safety Report 12234749 (Version 1)
Quarter: 2016Q2

REPORT INFORMATION
  Report Type: Spontaneous
  Country: GB (occurrence: GB)
  Receive Date: 20160404
  Receipt Date: 20160404
  Transmission Date: 20160815
  Serious: Yes (Other)
  Sender: FDA-Public Use
  Company Number: GB-TEVA-647270ACC

PATIENT
  Age: 68 Year
  Sex: Female
  Weight: 62.59 kg

DRUGS (1)
  1. SIMVASTATIN. [Suspect]
     Active Substance: SIMVASTATIN
     Indication: BLOOD CHOLESTEROL INCREASED
     Route: 048

REACTIONS (8)
  - Abnormal dreams [Unknown]
  - Restless legs syndrome [Unknown]
  - Eye swelling [Unknown]
  - Poor quality sleep [Unknown]
  - Fatigue [Unknown]
  - Muscle spasms [Unknown]
  - Nausea [Unknown]
  - Pain in extremity [Recovered/Resolved with Sequelae]

NARRATIVE: CASE EVENT DATE: 20150316
